FAERS Safety Report 12696742 (Version 2)
Quarter: 2016Q4

REPORT INFORMATION
  Report Type: Report from Study
  Country: US (occurrence: US)
  Receive Date: 20160830
  Receipt Date: 20161017
  Transmission Date: 20170207
  Serious: Yes (Hospitalization)
  Sender: FDA-Public Use
  Company Number: US-GILEAD-2016-0203944

PATIENT
  Age: 85 Year
  Sex: Female

DRUGS (10)
  1. FLOLAN [Concomitant]
     Active Substance: EPOPROSTENOL SODIUM
  2. COUMADIN [Concomitant]
     Active Substance: WARFARIN SODIUM
  3. LEVOTHYROXINE SODIUM. [Concomitant]
     Active Substance: LEVOTHYROXINE SODIUM
  4. FUROSEMIDE. [Concomitant]
     Active Substance: FUROSEMIDE
  5. ADCIRCA [Suspect]
     Active Substance: TADALAFIL
     Indication: PRODUCT USED FOR UNKNOWN INDICATION
     Dosage: UNK
     Route: 065
  6. DIGOXIN. [Concomitant]
     Active Substance: DIGOXIN
  7. IMODIUM [Concomitant]
     Active Substance: LOPERAMIDE HYDROCHLORIDE
  8. REVATIO [Concomitant]
     Active Substance: SILDENAFIL CITRATE
  9. VIAGRA [Concomitant]
     Active Substance: SILDENAFIL CITRATE
  10. AMBRISENTAN [Suspect]
     Active Substance: AMBRISENTAN
     Indication: PULMONARY HYPERTENSION
     Dosage: 5 MG, QD
     Route: 065
     Dates: start: 20080204

REACTIONS (2)
  - Pollakiuria [Not Recovered/Not Resolved]
  - Diarrhoea [Not Recovered/Not Resolved]
